FAERS Safety Report 19413699 (Version 1)
Quarter: 2021Q2

REPORT INFORMATION
  Report Type: Spontaneous
  Country: US (occurrence: US)
  Receive Date: 20210614
  Receipt Date: 20210614
  Transmission Date: 20210717
  Serious: Yes (Other)
  Sender: FDA-Public Use
  Company Number: US-BAYER-2021-153596

PATIENT
  Sex: Female

DRUGS (2)
  1. MIRALAX [Suspect]
     Active Substance: POLYETHYLENE GLYCOL 3350
  2. COVID?19 VACCINE [Concomitant]

REACTIONS (5)
  - Arthralgia [Unknown]
  - Fatigue [Unknown]
  - Drug hypersensitivity [None]
  - Angina pectoris [Unknown]
  - Nausea [Unknown]
